FAERS Safety Report 16660948 (Version 3)
Quarter: 2021Q1

REPORT INFORMATION
  Report Type: Spontaneous
  Country: US (occurrence: US)
  Receive Date: 20190802
  Receipt Date: 20210111
  Transmission Date: 20210419
  Serious: No
  Sender: FDA-Public Use
  Company Number: US-PFIZER INC-2019331070

PATIENT
  Age: 52 Year
  Sex: Male

DRUGS (1)
  1. LORBRENA [Suspect]
     Active Substance: LORLATINIB
     Indication: METASTATIC SQUAMOUS CELL CARCINOMA
     Dosage: 100 MG, UNK

REACTIONS (1)
  - Neoplasm progression [Unknown]
